FAERS Safety Report 14534695 (Version 2)
Quarter: 2018Q1

REPORT INFORMATION
  Report Type: Report from Study
  Country: US (occurrence: US)
  Receive Date: 20180215
  Receipt Date: 20180308
  Transmission Date: 20180509
  Serious: Yes (Other)
  Sender: FDA-Public Use
  Company Number: US-PFIZER INC-2017135786

PATIENT
  Age: 28 Year
  Sex: Male

DRUGS (3)
  1. XYNTHA [Suspect]
     Active Substance: ANTIHEMOPHILIC FACTOR, HUMAN RECOMBINANT RESIDUES 743-1636 DELETED
     Dosage: 3000 IU, AS NEEDED (PRN BLEED)
     Route: 042
     Dates: start: 20080101
  2. XYNTHA [Suspect]
     Active Substance: ANTIHEMOPHILIC FACTOR, HUMAN RECOMBINANT RESIDUES 743-1636 DELETED
     Indication: HAEMOPHILIA
     Dosage: 3000 IU, 1 HOUR PRE-OPERATION THEN EVERY 12 HOURS X 3 DAYS
     Route: 042
     Dates: start: 20080101
  3. XYNTHA [Suspect]
     Active Substance: ANTIHEMOPHILIC FACTOR, HUMAN RECOMBINANT RESIDUES 743-1636 DELETED
     Indication: TOOTH EXTRACTION
     Dosage: 3000 IU, 2X/DAY, (Q 12 HOURS)
     Route: 042
     Dates: start: 20161025, end: 20161028

REACTIONS (5)
  - Haemarthrosis [Unknown]
  - Thermal burn [Recovered/Resolved]
  - Fall [Unknown]
  - Swelling [Unknown]
  - Wrist fracture [Unknown]

NARRATIVE: CASE EVENT DATE: 20170313
